FAERS Safety Report 8929595 (Version 2)
Quarter: 2012Q4

REPORT INFORMATION
  Report Type: 
  Country: US (occurrence: US)
  Receive Date: 20121121
  Receipt Date: 20121212
  Transmission Date: 20130627
  Serious: Yes (Death, Hospitalization)
  Sender: FDA-Public Use
  Company Number: US-ASTELLAS-1093261

PATIENT
  Sex: Female

DRUGS (1)
  1. TARCEVA [Suspect]
     Indication: LUNG NEOPLASM MALIGNANT
     Route: 048
     Dates: start: 20090728

REACTIONS (5)
  - Lung neoplasm malignant [Fatal]
  - Vena cava thrombosis [Unknown]
  - Hypotension [Unknown]
  - Pain [Unknown]
  - Bone disorder [Unknown]
